FAERS Safety Report 17486879 (Version 1)
Quarter: 2020Q1

REPORT INFORMATION
  Report Type: Spontaneous
  Country: IT (occurrence: IT)
  Receive Date: 20200303
  Receipt Date: 20200303
  Transmission Date: 20200409
  Serious: Yes (Hospitalization)
  Sender: FDA-Public Use
  Company Number: IT-TEVA-2020-IT-1193031

PATIENT
  Age: 85 Year
  Sex: Female

DRUGS (5)
  1. PANTOPRAZOLO  TEVA  GENERICS [Concomitant]
  2. ABILIFY [Concomitant]
     Active Substance: ARIPIPRAZOLE
  3. DONEPEZIL ACCORD [Concomitant]
     Active Substance: DONEPEZIL
  4. CLOPIDOGREL BESILATE [Suspect]
     Active Substance: CLOPIDOGREL BESILATE
     Route: 048
     Dates: start: 20190101, end: 20200108
  5. DEPAKIN [Concomitant]
     Active Substance: VALPROATE SODIUM

REACTIONS (1)
  - Haematemesis [Recovering/Resolving]

NARRATIVE: CASE EVENT DATE: 20200108
